FAERS Safety Report 18457296 (Version 1)
Quarter: 2020Q4

REPORT INFORMATION
  Report Type: Spontaneous
  Country: US (occurrence: US)
  Receive Date: 20201030
  Receipt Date: 20201030
  Transmission Date: 20210114
  Serious: Yes (Other)
  Sender: FDA-Public Use
  Company Number: US-OREXO US, INC.-ORE202010-000070

PATIENT
  Age: 53 Year
  Sex: Female

DRUGS (10)
  1. ZUBSOLV [Suspect]
     Active Substance: BUPRENORPHINE HYDROCHLORIDE\NALOXONE HYDROCHLORIDE
     Indication: PAIN
     Dosage: ONCE A DAY
     Dates: start: 2019
  2. VALIUM [Concomitant]
     Active Substance: DIAZEPAM
     Dosage: 5MG/ONCE A DAY
  3. NARCAN [Concomitant]
     Active Substance: NALOXONE HYDROCHLORIDE
     Dosage: AS NEEDED
  4. LISOINOPRIL [Concomitant]
     Dosage: 10MG/ONCE A DAY
     Route: 048
  5. GABAPENON [Concomitant]
     Dosage: 600MG/ONCE A DAY
  6. LAMOTRIGINE. [Concomitant]
     Active Substance: LAMOTRIGINE
     Dosage: EXTENDED RELEASE (XR); 300MG/ONCE A DAY
     Route: 048
  7. ASPIRIN. [Concomitant]
     Active Substance: ASPIRIN
     Dosage: 325MG/ONCE A DAY
     Route: 048
  8. PRENATAL VITAMINS [Concomitant]
     Active Substance: VITAMINS
  9. VITAMIN D [Concomitant]
     Active Substance: VITAMIN D NOS
  10. COLACE [Concomitant]
     Active Substance: DOCUSATE SODIUM
     Dosage: 100MG/ONCE A DAY
     Route: 048

REACTIONS (7)
  - Hip fracture [Not Recovered/Not Resolved]
  - Fall [Unknown]
  - Dizziness [Not Recovered/Not Resolved]
  - Product use in unapproved indication [Unknown]
  - Head injury [Not Recovered/Not Resolved]
  - Product packaging quantity issue [Unknown]
  - Road traffic accident [Unknown]

NARRATIVE: CASE EVENT DATE: 201910
